FAERS Safety Report 25668736 (Version 5)
Quarter: 2025Q4

REPORT INFORMATION
  Report Type: Report from Study
  Country: ZA (occurrence: ZA)
  Receive Date: 20250812
  Receipt Date: 20251020
  Transmission Date: 20260117
  Serious: Yes (Hospitalization, Other)
  Sender: ABBVIE
  Company Number: ZA-ABBVIE-6406708

PATIENT
  Age: 47 Year
  Sex: Female

DRUGS (1)
  1. HUMIRA [Suspect]
     Active Substance: ADALIMUMAB
     Indication: Rheumatoid arthritis
     Dosage: FORM STRENGTH 40 MG, LAST ADMIN DATE: 2025
     Route: 058
     Dates: start: 20250520

REACTIONS (9)
  - Ovarian cyst [Not Recovered/Not Resolved]
  - Ovarian necrosis [Unknown]
  - Gait disturbance [Not Recovered/Not Resolved]
  - Uterine prolapse [Unknown]
  - Erythema [Not Recovered/Not Resolved]
  - Uterine enlargement [Unknown]
  - Rheumatoid arthritis [Not Recovered/Not Resolved]
  - Peripheral swelling [Not Recovered/Not Resolved]
  - Ovarian mass [Unknown]

NARRATIVE: CASE EVENT DATE: 20250101
